FAERS Safety Report 4410197-5 (Version None)
Quarter: 2004Q2

REPORT INFORMATION
  Report Type: 
  Country: None (occurrence: None)
  Receive Date: 20040618
  Receipt Date: 20040326
  Transmission Date: 20050107
  Serious: No
  Sender: FDA-Public Use
  Company Number: US-JNJFOC-20040306571

PATIENT
  Age: 18 Year
  Sex: Female
  Weight: 63.5036 kg

DRUGS (5)
  1. ORTHO EVRA [Suspect]
     Indication: MENSTRUAL DISORDER
     Dosage: 1 DOSE(S), 3 IN 4 WEEKS, TRANSDERMAL
     Route: 062
     Dates: start: 20040101
  2. LEXAPRO [Concomitant]
  3. WELLBUTRIN XL (BUPROPION HYDROCHLORIDE) [Concomitant]
  4. NASONEX [Concomitant]
  5. ZYRTEC [Concomitant]

REACTIONS (1)
  - METRORRHAGIA [None]
